FAERS Safety Report 4365186-6 (Version None)
Quarter: 2004Q2

REPORT INFORMATION
  Report Type: 
  Country: None (occurrence: None)
  Receive Date: 20040525
  Receipt Date: 20040305
  Transmission Date: 20050107
  Serious: No
  Sender: FDA-Public Use
  Company Number: PHEH2004US02726

PATIENT
  Age: 54 Year
  Sex: Female

DRUGS (1)
  1. ZELNORM [Suspect]
     Indication: ABDOMINAL DISTENSION
     Dosage: 6 MG, BID, ORAL
     Route: 048
     Dates: start: 20040301

REACTIONS (3)
  - ABDOMINAL DISTENSION [None]
  - CONDITION AGGRAVATED [None]
  - DYSGEUSIA [None]
